FAERS Safety Report 17347595 (Version 1)
Quarter: 2020Q1

REPORT INFORMATION
  Report Type: Spontaneous
  Country: US (occurrence: US)
  Receive Date: 20200115
  Receipt Date: 20200115
  Transmission Date: 20200409
  Serious: Yes (Hospitalization)
  Sender: FDA-Public Use
  Company Number: None

PATIENT
  Age: 82 Year
  Sex: Female

DRUGS (1)
  1. IBRANCE [Suspect]
     Active Substance: PALBOCICLIB
     Indication: BREAST CANCER FEMALE
     Dosage: ?          OTHER DOSE:1 TABLET;OTHER FREQUENCY:DAILY X21/28D;?
     Route: 048
     Dates: start: 20191206

REACTIONS (3)
  - Anaemia [None]
  - Fatigue [None]
  - Leukopenia [None]
